FAERS Safety Report 8960321 (Version 1)
Quarter: 2012Q4

REPORT INFORMATION
  Report Type: 
  Country: US (occurrence: US)
  Receive Date: 20121212
  Receipt Date: 20121212
  Transmission Date: 20130627
  Serious: Yes (Death, Hospitalization)
  Sender: FDA-Public Use
  Company Number: US-ELI_LILLY_AND_COMPANY-US201210007910

PATIENT
  Sex: Male

DRUGS (1)
  1. HUMALOG LISPRO [Suspect]
     Indication: TYPE 2 DIABETES MELLITUS
     Dosage: 4 u, unknown

REACTIONS (7)
  - Death [Fatal]
  - Hospitalisation [Unknown]
  - Gangrene [Unknown]
  - Decubitus ulcer [Unknown]
  - Blood glucose increased [Unknown]
  - Pain in extremity [Unknown]
  - Drug dose omission [Unknown]
